FAERS Safety Report 20040016 (Version 1)
Quarter: 2021Q4

REPORT INFORMATION
  Report Type: Spontaneous
  Country: FR (occurrence: FR)
  Receive Date: 20211106
  Receipt Date: 20211106
  Transmission Date: 20220303
  Serious: Yes (Other)
  Sender: FDA-Public Use
  Company Number: None

PATIENT
  Age: 72 Year
  Sex: Female

DRUGS (2)
  1. EPIRUBICIN [Suspect]
     Active Substance: EPIRUBICIN
     Indication: Breast cancer
     Dosage: 200MILLIGRAM
     Route: 042
     Dates: start: 20210805, end: 20210920
  2. CYCLOPHOSPHAMIDE [Suspect]
     Active Substance: CYCLOPHOSPHAMIDE
     Indication: Breast cancer
     Dosage: 1GRAM
     Route: 042
     Dates: start: 20210805, end: 20210920

REACTIONS (2)
  - Catheter site thrombosis [Recovering/Resolving]
  - Catheter site extravasation [Recovering/Resolving]

NARRATIVE: CASE EVENT DATE: 20210920
